FAERS Safety Report 7333247-5 (Version None)
Quarter: 2011Q1

REPORT INFORMATION
  Report Type: 
  Country: None (occurrence: None)
  Receive Date: 20110304
  Receipt Date: 20110224
  Transmission Date: 20110831
  Serious: Yes (Life-Threatening, Hospitalization, Other)
  Sender: FDA-Public Use
  Company Number: US-AMGEN-US112652

PATIENT
  Age: 64 Year
  Sex: Female

DRUGS (7)
  1. RIFAMPICIN [Concomitant]
     Dosage: 300 MG, BID
  2. PREDNISONE [Concomitant]
     Dosage: 10 MG, QD
  3. METHOTREXATE [Suspect]
  4. ETHAMBUTOL HYDROCHLORIDE [Suspect]
     Dosage: 400 MG, TID
  5. ADALIMUMAB [Suspect]
     Dosage: UNK UNK, UNK
     Dates: start: 20030901, end: 20040101
  6. PYRAZINAMIDE [Concomitant]
     Dosage: 500 MG, TID
  7. ENBREL [Suspect]
     Indication: RHEUMATOID ARTHRITIS
     Dosage: 25 MG, 2 TIMES/WK
     Route: 058
     Dates: start: 20010726, end: 20030915

REACTIONS (6)
  - BLINDNESS [None]
  - TOXIC OPTIC NEUROPATHY [None]
  - CATARACT [None]
  - PERITONEAL TUBERCULOSIS [None]
  - VISION BLURRED [None]
  - HEPATITIS [None]
